FAERS Safety Report 6652381-6 (Version None)
Quarter: 2010Q1

REPORT INFORMATION
  Report Type: 
  Country: None (occurrence: None)
  Receive Date: 20100325
  Receipt Date: 20100317
  Transmission Date: 20100710
  Serious: Yes (Hospitalization)
  Sender: FDA-Public Use
  Company Number: JP-ROCHE-662925

PATIENT
  Sex: Male
  Weight: 65 kg

DRUGS (11)
  1. TOCILIZUMAB [Suspect]
     Indication: RHEUMATOID ARTHRITIS
     Route: 041
     Dates: start: 20090519, end: 20090519
  2. TOCILIZUMAB [Suspect]
     Route: 041
     Dates: start: 20090616, end: 20090616
  3. TOCILIZUMAB [Suspect]
     Route: 041
     Dates: start: 20090714, end: 20090714
  4. TOCILIZUMAB [Suspect]
     Route: 041
     Dates: start: 20090807, end: 20090807
  5. TOCILIZUMAB [Suspect]
     Route: 041
     Dates: start: 20090904, end: 20090904
  6. PREDNISOLONE [Concomitant]
     Dosage: RUG: PREDOHAN(PREDNISOLONE)
     Route: 048
  7. BENET [Concomitant]
     Dosage: BENET(SODIUM RISEDRONATE HYDRATE)
     Route: 048
     Dates: start: 20090321
  8. ISCOTIN [Concomitant]
     Route: 048
     Dates: start: 20090509
  9. CELECOXIB [Concomitant]
     Dosage: DRUG: CELECOX
     Route: 048
  10. FAMOTIDINE [Concomitant]
     Dosage: DRUG REPORTED : GASRICK D
     Route: 048
  11. MOHRUS [Concomitant]
     Dosage: DRUG: MOHRUS TAPE, FORM: TAPE, NOTE: 2-3 PIECES
     Route: 061

REACTIONS (1)
  - INTERSTITIAL LUNG DISEASE [None]
